FAERS Safety Report 18594899 (Version 1)
Quarter: 2020Q4

REPORT INFORMATION
  Report Type: Spontaneous
  Country: US (occurrence: US)
  Receive Date: 20201209
  Receipt Date: 20201209
  Transmission Date: 20210114
  Serious: Yes (Other)
  Sender: FDA-Public Use
  Company Number: US-ADAMAS PHARMA, LLC-2020ADA02343

PATIENT
  Sex: Male

DRUGS (3)
  1. GOCOVRI [Suspect]
     Active Substance: AMANTADINE
     Indication: DYSKINESIA
     Dosage: UNK
     Route: 048
     Dates: start: 20190203
  2. RYTARY [Concomitant]
     Active Substance: CARBIDOPA\LEVODOPA
     Dosage: UNK
     Dates: start: 201812
  3. GOCOVRI [Suspect]
     Active Substance: AMANTADINE
     Indication: PARKINSON^S DISEASE

REACTIONS (10)
  - Dysarthria [Unknown]
  - Speech disorder [Unknown]
  - Impaired quality of life [Unknown]
  - Dysphagia [Unknown]
  - Neuroprosthesis implantation [Unknown]
  - Periarthritis [Unknown]
  - Peripheral swelling [Recovering/Resolving]
  - Arthropathy [Unknown]
  - Physiotherapy [Recovering/Resolving]
  - Depression [Recovering/Resolving]

NARRATIVE: CASE EVENT DATE: 2019
